FAERS Safety Report 22649553 (Version 4)
Quarter: 2024Q1

REPORT INFORMATION
  Report Type: Spontaneous
  Country: CN (occurrence: CN)
  Receive Date: 20230628
  Receipt Date: 20240308
  Transmission Date: 20240409
  Serious: Yes (Other)
  Sender: FDA-Public Use
  Company Number: CN-002147023-NVSC2023CN145500

PATIENT
  Sex: Female

DRUGS (1)
  1. ENTRESTO [Suspect]
     Active Substance: SACUBITRIL\VALSARTAN
     Indication: Product used for unknown indication
     Dosage: UNK (100 MG*14)
     Route: 048

REACTIONS (5)
  - Blood pressure diastolic increased [Unknown]
  - Angina pectoris [Unknown]
  - Counterfeit product administered [Unknown]
  - Drug ineffective [Unknown]
  - Product storage error [Unknown]
